FAERS Safety Report 16165310 (Version 1)
Quarter: 2019Q2

REPORT INFORMATION
  Report Type: Other
  Country: CN (occurrence: CN)
  Receive Date: 20190405
  Receipt Date: 20190405
  Transmission Date: 20190711
  Serious: Yes (Other)
  Sender: FDA-Public Use
  Company Number: CN-GE HEALTHCARE LIFE SCIENCES-2019CSU001900

PATIENT

DRUGS (3)
  1. VISIPAQUE [Suspect]
     Active Substance: IODIXANOL
     Indication: SQUAMOUS CELL CARCINOMA OF LUNG
  2. VISIPAQUE [Suspect]
     Active Substance: IODIXANOL
     Indication: COMPUTERISED TOMOGRAM
     Dosage: 100 ML (UNDER PRESSURE), SINGLE
     Route: 042
     Dates: start: 20190321, end: 20190321
  3. FENTANYL TRANSDERMAL SYSTEM [Concomitant]
     Active Substance: FENTANYL
     Indication: SQUAMOUS CELL CARCINOMA OF LUNG
     Dosage: 4.125 MG, EVERY 72 HRS
     Dates: start: 20190320, end: 20190321

REACTIONS (4)
  - Fear [Unknown]
  - Hypersensitivity [Recovering/Resolving]
  - Miosis [Unknown]
  - Cyanosis [Unknown]

NARRATIVE: CASE EVENT DATE: 20190321
